FAERS Safety Report 8589551-6 (Version None)
Quarter: 2012Q3

REPORT INFORMATION
  Report Type: 
  Country: None (occurrence: None)
  Receive Date: 20120813
  Receipt Date: 20120808
  Transmission Date: 20120928
  Serious: Yes (Death)
  Sender: FDA-Public Use
  Company Number: US-ROCHE-1043569

PATIENT
  Sex: Female

DRUGS (2)
  1. AVASTIN [Suspect]
     Indication: NON-SMALL CELL LUNG CANCER
  2. TARCEVA [Concomitant]
     Indication: NON-SMALL CELL LUNG CANCER

REACTIONS (3)
  - NON-SMALL CELL LUNG CANCER [None]
  - COUNTERFEIT DRUG ADMINISTERED [None]
  - PRODUCT QUALITY ISSUE [None]
